FAERS Safety Report 9893085 (Version 2)
Quarter: 2014Q1

REPORT INFORMATION
  Report Type: Spontaneous
  Country: DE (occurrence: DE)
  Receive Date: 20140213
  Receipt Date: 20140310
  Transmission Date: 20141002
  Serious: Yes (Hospitalization)
  Sender: FDA-Public Use
  Company Number: DE-BRISTOL-MYERS SQUIBB COMPANY-20136420

PATIENT
  Age: 89 Year
  Sex: Male

DRUGS (5)
  1. ELIQUIS [Suspect]
     Indication: ATRIAL FIBRILLATION
     Dosage: TABS?1DF=2 X 5 MG PER DAY
     Dates: start: 201309
  2. BISOPROLOL [Concomitant]
  3. VIGANTOLETTEN [Concomitant]
  4. FINASTERIDE [Concomitant]
  5. CLEXANE [Concomitant]

REACTIONS (2)
  - Autoimmune haemolytic anaemia [Unknown]
  - Chronic lymphocytic leukaemia [Unknown]
